FAERS Safety Report 4348411-7 (Version None)
Quarter: 2004Q1

REPORT INFORMATION
  Report Type: 
  Country: None (occurrence: None)
  Receive Date: 20040325
  Receipt Date: 20040119
  Transmission Date: 20041129
  Serious: No
  Sender: FDA-Public Use
  Company Number: USA031049853

PATIENT
  Age: 48 Year
  Sex: Female

DRUGS (7)
  1. FORTEO [Suspect]
     Indication: OSTEOPOROSIS
     Dosage: 20 UG/DAY
     Dates: start: 20030917
  2. PREMARIN(ESTORGENS CONJUGATED) [Concomitant]
  3. PAXIL [Concomitant]
  4. LEVOXYL [Concomitant]
  5. PROTONIX [Concomitant]
  6. AMBIEN [Concomitant]
  7. VICODIN ES [Concomitant]

REACTIONS (4)
  - ARTHRALGIA [None]
  - DIFFICULTY IN WALKING [None]
  - LABORATORY TEST ABNORMAL [None]
  - PAIN IN EXTREMITY [None]
